FAERS Safety Report 5470757-X (Version None)
Quarter: 2007Q3

REPORT INFORMATION
  Report Type: 
  Country: None (occurrence: None)
  Receive Date: 20070928
  Receipt Date: 20070917
  Transmission Date: 20080115
  Serious: Yes (Hospitalization)
  Sender: FDA-Public Use
  Company Number: GB-AVENTIS-200717670GDDC

PATIENT
  Age: 30 Year
  Sex: Female
  Weight: 52.4 kg

DRUGS (4)
  1. TAXOTERE [Suspect]
     Route: 041
     Dates: start: 20070618, end: 20070730
  2. KALETRA [Suspect]
     Dosage: DOSE: 400MG/100MG
     Route: 048
     Dates: start: 20070728, end: 20070811
  3. COMBIVIR [Concomitant]
     Dosage: DOSE: 300MG/150MG
     Route: 048
     Dates: start: 20070728, end: 20070808
  4. CETIRIZINE HCL [Concomitant]
     Dosage: DOSE: 5 MG
     Route: 048

REACTIONS (8)
  - ARTHRALGIA [None]
  - BLISTER [None]
  - DRUG INTERACTION [None]
  - MUCOSAL INFLAMMATION [None]
  - MYALGIA [None]
  - NEUTROPENIA [None]
  - OEDEMA [None]
  - RASH [None]
